FAERS Safety Report 6236557-8 (Version None)
Quarter: 2009Q2

REPORT INFORMATION
  Report Type: 
  Country: None (occurrence: None)
  Receive Date: 20090619
  Receipt Date: 20090520
  Transmission Date: 20091009
  Serious: Yes (Death, Hospitalization)
  Sender: FDA-Public Use
  Company Number: B0579764A

PATIENT
  Sex: Female
  Weight: 70 kg

DRUGS (6)
  1. LAPATINIB [Suspect]
     Indication: BREAST CANCER
     Dosage: 1250MG PER DAY
     Dates: start: 20090504, end: 20090507
  2. CAPECITABINE [Suspect]
     Indication: BREAST CANCER
     Dosage: 2000MGM2 PER DAY
     Dates: start: 20090318, end: 20090507
  3. ANTRA [Concomitant]
     Indication: PROPHYLAXIS
     Route: 048
     Dates: start: 20090504
  4. SOLDESAM [Concomitant]
     Dosage: 32DROP PER DAY
     Route: 048
     Dates: start: 20090427
  5. GASTRO GEL [Concomitant]
     Indication: PROPHYLAXIS
     Dosage: 10ML TWICE PER DAY
     Route: 048
     Dates: start: 20090427
  6. CEREBRAL RADIOTHERAPY [Concomitant]
     Dates: start: 20090403, end: 20090417

REACTIONS (7)
  - DIARRHOEA [None]
  - HYPONATRAEMIA [None]
  - NAUSEA [None]
  - NEUTROPENIA [None]
  - PYREXIA [None]
  - SEPSIS [None]
  - VOMITING [None]
